FAERS Safety Report 19029755 (Version 1)
Quarter: 2021Q1

REPORT INFORMATION
  Report Type: Spontaneous
  Country: US (occurrence: US)
  Receive Date: 20210317
  Receipt Date: 20210317
  Transmission Date: 20210420
  Serious: No
  Sender: FDA-Public Use
  Company Number: None

PATIENT

DRUGS (1)
  1. BOTOX [Suspect]
     Active Substance: ONABOTULINUMTOXINA
     Dosage: ?          OTHER DOSE:150?200 UNITS;OTHER FREQUENCY:UNKNOWN;?
     Route: 030
     Dates: start: 202103

REACTIONS (1)
  - Off label use [None]

NARRATIVE: CASE EVENT DATE: 20210317
